FAERS Safety Report 12091509 (Version 1)
Quarter: 2016Q1

REPORT INFORMATION
  Report Type: Spontaneous
  Country: CL (occurrence: CL)
  Receive Date: 20160218
  Receipt Date: 20160218
  Transmission Date: 20160526
  Serious: Yes (Other)
  Sender: FDA-Public Use
  Company Number: CL-ROCHE-1702326

PATIENT
  Age: 19 Year
  Sex: Male

DRUGS (3)
  1. COTELLIC [Suspect]
     Active Substance: COBIMETINIB
     Indication: METASTATIC MALIGNANT MELANOMA
     Route: 065
     Dates: start: 20160208
  2. ZELBORAF [Suspect]
     Active Substance: VEMURAFENIB
     Route: 065
     Dates: start: 20160104
  3. ZELBORAF [Suspect]
     Active Substance: VEMURAFENIB
     Indication: METASTATIC MALIGNANT MELANOMA
     Route: 065
     Dates: start: 20151028

REACTIONS (4)
  - Metastases to central nervous system [Unknown]
  - Photosensitivity reaction [Recovered/Resolved]
  - Dermatitis acneiform [Recovered/Resolved]
  - Diarrhoea [Unknown]

NARRATIVE: CASE EVENT DATE: 20151111
